FAERS Safety Report 15922624 (Version 15)
Quarter: 2020Q2

REPORT INFORMATION
  Report Type: Spontaneous
  Country: CA (occurrence: CA)
  Receive Date: 20190205
  Receipt Date: 20200404
  Transmission Date: 20200713
  Serious: Yes (Hospitalization, Other)
  Sender: FDA-Public Use
  Company Number: CA-CELLTRION INC.-2018CA022194

PATIENT

DRUGS (54)
  1. INFLECTRA [Suspect]
     Active Substance: INFLIXIMAB-DYYB
     Dosage: 250 MG (5MG/KG, EVERY 0, 2, 6 WEEKS, THEN EVERY 8 WEEKS)
     Route: 042
     Dates: start: 20190724, end: 20190724
  2. FOLIC ACID. [Concomitant]
     Active Substance: FOLIC ACID
     Dosage: 5 MG, DAILY
     Route: 065
  3. PREDNISONE. [Concomitant]
     Active Substance: PREDNISONE
     Dosage: 20 MG, DAILY
     Route: 065
  4. DIPHENHYDRAMINE. [Concomitant]
     Active Substance: DIPHENHYDRAMINE
     Indication: PREMEDICATION
     Dosage: 50 MG, UNK
     Route: 048
     Dates: start: 20181203
  5. DIPHENHYDRAMINE. [Concomitant]
     Active Substance: DIPHENHYDRAMINE
     Dosage: 25 MG, UNK
     Route: 048
     Dates: start: 20190115
  6. HYDROCORTISONE. [Concomitant]
     Active Substance: HYDROCORTISONE
     Dosage: 100 MG
     Route: 042
     Dates: start: 20190924
  7. INFLECTRA [Suspect]
     Active Substance: INFLIXIMAB-DYYB
     Dosage: 350 MG, EVERY 8 WEEKS
     Route: 042
     Dates: start: 20191122
  8. WARFARIN [Concomitant]
     Active Substance: WARFARIN
     Dosage: 4 MG, DAILY
     Route: 065
  9. ALENDRONATE [Concomitant]
     Active Substance: ALENDRONATE SODIUM
     Dosage: 5 MG, DAILY
     Route: 048
  10. ACETAMINOPHEN. [Concomitant]
     Active Substance: ACETAMINOPHEN
     Dosage: 650 MG, UNK
     Route: 048
     Dates: start: 20190115
  11. ACETAMINOPHEN. [Concomitant]
     Active Substance: ACETAMINOPHEN
     Dosage: 650 MG, UNK
     Route: 048
     Dates: start: 20190924
  12. HYDROCORTISONE. [Concomitant]
     Active Substance: HYDROCORTISONE
     Dosage: 100 MG, UNK
     Route: 042
     Dates: start: 20190115
  13. IMURAN [Concomitant]
     Active Substance: AZATHIOPRINE
     Dosage: 150 MG, DAILY
     Route: 048
  14. BISOPROLOL [Concomitant]
     Active Substance: BISOPROLOL
     Indication: HEART RATE
     Dosage: UNK
     Route: 065
     Dates: end: 20191009
  15. ADVAIR HFA [Concomitant]
     Active Substance: FLUTICASONE PROPIONATE\SALMETEROL XINAFOATE
     Dosage: UNK
     Route: 065
  16. METFORMIN [Concomitant]
     Active Substance: METFORMIN HYDROCHLORIDE
     Dosage: UNK
     Route: 065
     Dates: end: 20180911
  17. INFLECTRA [Suspect]
     Active Substance: INFLIXIMAB-DYYB
     Dosage: 250 MG (5MG/KG, EVERY 0, 2, 6 WEEKS, THEN EVERY 8 WEEKS)
     Route: 042
     Dates: start: 20181218
  18. ROSUVASTATIN. [Concomitant]
     Active Substance: ROSUVASTATIN
     Dosage: 10 MG, DAILY
  19. ASPIRIN (E.C.) [Concomitant]
     Active Substance: ASPIRIN
     Dosage: 81 MG, DAILY
     Route: 065
  20. SPIRIVA [Concomitant]
     Active Substance: TIOTROPIUM BROMIDE MONOHYDRATE
     Dosage: UNK
     Route: 065
  21. T3 [Concomitant]
     Active Substance: LIOTHYRONINE SODIUM
     Dosage: 2 DF (TABLETS), 2X/DAY
     Route: 048
  22. PANTOLOC [Concomitant]
     Active Substance: PANTOPRAZOLE SODIUM
     Dosage: 40 MG, DAILY
     Route: 065
  23. INFLECTRA [Suspect]
     Active Substance: INFLIXIMAB-DYYB
     Indication: TAKAYASU^S ARTERITIS
     Dosage: 250 MG (5MG/KG, EVERY 0, 2, 6 WEEKS, THEN EVERY 8 WEEKS)
     Route: 042
     Dates: start: 20181203
  24. CALCIUM [Concomitant]
     Active Substance: CALCIUM
     Dosage: 500 MG, 2X/DAY
     Route: 065
  25. DILTIAZEM. [Concomitant]
     Active Substance: DILTIAZEM
     Dosage: 240 MG, 2X/DAY
     Route: 065
  26. FERROUS GLUCONATE [Concomitant]
     Active Substance: FERROUS GLUCONATE
     Dosage: 300 MG, DAILY
     Route: 065
  27. DIPHENHYDRAMINE. [Concomitant]
     Active Substance: DIPHENHYDRAMINE
     Dosage: 25 MG, UNK
     Route: 048
     Dates: start: 20190724
  28. CRESTOR [Concomitant]
     Active Substance: ROSUVASTATIN CALCIUM
     Dosage: 10 MG, DAILY
     Route: 065
  29. IRON [Concomitant]
     Active Substance: IRON
     Dosage: UNK
     Route: 065
  30. DILTIAZEM CD [Concomitant]
     Active Substance: DILTIAZEM
     Indication: HEART RATE
     Dosage: 120 MG, DAILY
     Dates: start: 20191009
  31. APIXABAN [Concomitant]
     Active Substance: APIXABAN
     Indication: CEREBROVASCULAR DISORDER
     Dosage: 2.5 MG, 2X/DAY
     Route: 048
  32. INFLECTRA [Suspect]
     Active Substance: INFLIXIMAB-DYYB
     Dosage: 350 MG, EVERY 8 WEEKS
     Route: 042
     Dates: start: 20190924
  33. AZATHIOPRINE. [Concomitant]
     Active Substance: AZATHIOPRINE
     Dosage: 150 MG, DAILY
     Route: 048
  34. VITAMIN D [Concomitant]
     Active Substance: VITAMIN D NOS
     Dosage: 2000 UNITS, DAILY
     Route: 065
  35. HYDROCORTISONE. [Concomitant]
     Active Substance: HYDROCORTISONE
     Indication: PREMEDICATION
     Dosage: 100 MG, UNK
     Route: 042
     Dates: start: 20181203
  36. METFORMIN [Concomitant]
     Active Substance: METFORMIN HYDROCHLORIDE
     Dosage: UNK
     Route: 065
  37. KEFLEX [Concomitant]
     Active Substance: CEPHALEXIN
     Indication: ABSCESS LIMB
  38. INFLECTRA [Suspect]
     Active Substance: INFLIXIMAB-DYYB
     Dosage: 250 MG (5MG/KG, EVERY 0, 2, 6 WEEKS, THEN EVERY 8 WEEKS)
     Route: 042
     Dates: start: 20190115
  39. ACETAMINOPHEN. [Concomitant]
     Active Substance: ACETAMINOPHEN
     Indication: PREMEDICATION
     Dosage: 650 MG, UNK
     Dates: start: 20181203
  40. ACETAMINOPHEN. [Concomitant]
     Active Substance: ACETAMINOPHEN
     Dosage: 650 MG, UNK
     Route: 048
     Dates: start: 20190409, end: 20190409
  41. HYDROCORTISONE. [Concomitant]
     Active Substance: HYDROCORTISONE
     Dosage: 100 MG
     Route: 042
     Dates: start: 20190724, end: 20190724
  42. GRAVOL [Concomitant]
     Active Substance: DIMENHYDRINATE
     Indication: PREMEDICATION
     Dosage: 50 MG, UNK
     Route: 048
     Dates: start: 20181203
  43. INFLECTRA [Suspect]
     Active Substance: INFLIXIMAB-DYYB
     Dosage: 250 MG (5MG/KG, EVERY 0, 2, 6 WEEKS, THEN EVERY 8 WEEKS)
     Route: 042
     Dates: start: 20190530
  44. PANTOPRAZOLE [Concomitant]
     Active Substance: PANTOPRAZOLE
     Dosage: 40 MG, DAILY
  45. PREDNISONE. [Concomitant]
     Active Substance: PREDNISONE
     Dosage: 5 MG, DAILY
     Route: 065
  46. VENTOLIN [Concomitant]
     Active Substance: ALBUTEROL SULFATE
     Dosage: UNK, DAILY
     Route: 065
  47. DIPHENHYDRAMINE. [Concomitant]
     Active Substance: DIPHENHYDRAMINE
     Dosage: 25 MG, UNK
     Route: 048
     Dates: start: 20190924
  48. ACETAMINOPHEN. [Concomitant]
     Active Substance: ACETAMINOPHEN
     Dosage: 650 MG, UNK
     Route: 048
     Dates: start: 20190724, end: 20190724
  49. VENTOLIN [Concomitant]
     Active Substance: ALBUTEROL SULFATE
     Dosage: UNK UNK, DAILY
     Route: 065
  50. INFLECTRA [Suspect]
     Active Substance: INFLIXIMAB-DYYB
     Dosage: 250 MG (5MG/KG, EVERY 0, 2, 6 WEEKS, THEN EVERY 8 WEEKS)
     Route: 042
     Dates: start: 20190409
  51. PREDNISONE. [Concomitant]
     Active Substance: PREDNISONE
     Dosage: 5 MG, DAILY
     Route: 065
  52. HYDROCORTISONE. [Concomitant]
     Active Substance: HYDROCORTISONE
     Dosage: 100 MG
     Route: 042
     Dates: start: 20190409, end: 20190409
  53. DIMENHYDRINATE. [Concomitant]
     Active Substance: DIMENHYDRINATE
     Indication: PREMEDICATION
     Dosage: 25 MG, UNK
     Route: 048
     Dates: start: 20190115
  54. IMURAN [Concomitant]
     Active Substance: AZATHIOPRINE
     Dosage: 100 MG, DAILY
     Route: 048

REACTIONS (61)
  - Intestinal ischaemia [Not Recovered/Not Resolved]
  - Respiratory tract infection [Unknown]
  - Nasopharyngitis [Unknown]
  - Feeding disorder [Unknown]
  - Dyspepsia [Unknown]
  - Poor venous access [Unknown]
  - Muscle atrophy [Unknown]
  - Weight increased [Unknown]
  - Carotid bruit [Unknown]
  - Aortic bruit [Unknown]
  - Haemoglobin decreased [Unknown]
  - Blood pressure fluctuation [Not Recovered/Not Resolved]
  - Arthralgia [Unknown]
  - Condition aggravated [Unknown]
  - Wheezing [Unknown]
  - Palpitations [Unknown]
  - Pain in extremity [Unknown]
  - Chest pain [Unknown]
  - Dyspnoea exertional [Unknown]
  - Transient ischaemic attack [Unknown]
  - Drug ineffective for unapproved indication [Unknown]
  - Osteoarthritis [Unknown]
  - Joint swelling [Unknown]
  - Abscess limb [Recovering/Resolving]
  - Lower respiratory tract infection [Unknown]
  - Pulmonary hypertension [Recovered/Resolved]
  - Sensory loss [Unknown]
  - Off label use [Unknown]
  - Arthritis [Unknown]
  - Ear discomfort [Unknown]
  - Influenza like illness [Recovering/Resolving]
  - Intermittent claudication [Unknown]
  - Discomfort [Unknown]
  - Gait disturbance [Unknown]
  - Osteonecrosis [Unknown]
  - Mitral valve incompetence [Unknown]
  - Facial paresis [Unknown]
  - Lethargy [Unknown]
  - Neck pain [Unknown]
  - Asthenia [Unknown]
  - Fatigue [Unknown]
  - Dyspnoea [Unknown]
  - Pneumonia [Unknown]
  - Renal impairment [Unknown]
  - Productive cough [Not Recovered/Not Resolved]
  - Gastrointestinal disorder [Unknown]
  - Chest discomfort [Not Recovered/Not Resolved]
  - Dehydration [Unknown]
  - Mobility decreased [Unknown]
  - Musculoskeletal stiffness [Unknown]
  - Myalgia [Unknown]
  - Nocturia [Unknown]
  - Abdominal bruit [Unknown]
  - Facial paralysis [Unknown]
  - Choking [Unknown]
  - Product use in unapproved indication [Unknown]
  - Claudication of jaw muscles [Unknown]
  - Red blood cell sedimentation rate increased [Unknown]
  - Incorrect dose administered [Unknown]
  - Pain [Unknown]
  - Dysphagia [Unknown]

NARRATIVE: CASE EVENT DATE: 20181203
